FAERS Safety Report 9387846 (Version 1)
Quarter: 2013Q3

REPORT INFORMATION
  Report Type: Spontaneous
  Country: US (occurrence: None)
  Receive Date: 20130701
  Receipt Date: 20130701
  Transmission Date: 20140515
  Serious: Yes (Hospitalization)
  Sender: FDA-Public Use
  Company Number: AUR-APL-2013-05240

PATIENT
  Age: 84 Year
  Sex: Female

DRUGS (6)
  1. TRIMETHOPRIM + SULFAMETHOXAZOLE [Suspect]
     Indication: ABSCESS
  2. METOPROLOL(METOPROLOL) [Concomitant]
  3. ROSUVASTATIN(ROSUVASTATIN) [Concomitant]
  4. DIGOXIN(DIGOXIN) [Concomitant]
  5. ASPIRIN(ACETYLSALICYLIC ACID) [Concomitant]
  6. IBUPROFEN(IBUPROFEN) [Concomitant]

REACTIONS (9)
  - Gastrointestinal haemorrhage [None]
  - Dizziness [None]
  - Pallor [None]
  - Hyperhidrosis [None]
  - Haemoglobin decreased [None]
  - Hypotension [None]
  - Thrombocytopenia [None]
  - Gastrointestinal arteriovenous malformation [None]
  - Staphylococcus test positive [None]
